FAERS Safety Report 22297730 (Version 2)
Quarter: 2023Q2

REPORT INFORMATION
  Report Type: Report from Study
  Country: US (occurrence: US)
  Receive Date: 20230509
  Receipt Date: 20230509
  Transmission Date: 20230721
  Serious: Yes (Hospitalization)
  Sender: FDA-Public Use
  Company Number: US-TAKEDA-2022TUS084472

PATIENT
  Age: 53 Year
  Sex: Female
  Weight: 67 kg

DRUGS (32)
  1. HUMAN IMMUNOGLOBULIN G\HYALURONIDASE RECOMBINANT HUMAN [Suspect]
     Active Substance: HUMAN IMMUNOGLOBULIN G\HYALURONIDASE RECOMBINANT HUMAN
     Indication: Primary immunodeficiency syndrome
     Dosage: 35 GRAM, Q4WEEKS
     Route: 058
  2. HUMAN IMMUNOGLOBULIN G\HYALURONIDASE RECOMBINANT HUMAN [Suspect]
     Active Substance: HUMAN IMMUNOGLOBULIN G\HYALURONIDASE RECOMBINANT HUMAN
     Indication: Selective IgG subclass deficiency
  3. HUMAN IMMUNOGLOBULIN G\HYALURONIDASE RECOMBINANT HUMAN [Suspect]
     Active Substance: HUMAN IMMUNOGLOBULIN G\HYALURONIDASE RECOMBINANT HUMAN
     Indication: Immunodeficiency common variable
  4. DIPHENHYDRAMINE [Concomitant]
     Active Substance: DIPHENHYDRAMINE
  5. CYANOCOBALAMIN [Concomitant]
     Active Substance: CYANOCOBALAMIN
  6. EPINEPHRINE [Concomitant]
     Active Substance: EPINEPHRINE
  7. SYMBICORT [Concomitant]
     Active Substance: BUDESONIDE\FORMOTEROL FUMARATE DIHYDRATE
  8. HYDROXYCHLOROQUINE SULFATE [Concomitant]
     Active Substance: HYDROXYCHLOROQUINE SULFATE
  9. CEFUROXIME [Concomitant]
     Active Substance: CEFUROXIME
  10. MUCINEX [Concomitant]
     Active Substance: GUAIFENESIN
  11. TRAMADOL HCL [Concomitant]
     Active Substance: TRAMADOL HYDROCHLORIDE
  12. ACETAMINOPHEN [Concomitant]
     Active Substance: ACETAMINOPHEN
  13. THIAMINE HYDROCHLORIDE [Concomitant]
     Active Substance: THIAMINE HYDROCHLORIDE
  14. FLONASE ALLERGY RELIEF [Concomitant]
     Active Substance: FLUTICASONE PROPIONATE
  15. TRAZODONE HCL [Concomitant]
     Active Substance: TRAZODONE HYDROCHLORIDE
  16. ALBUTEROL\IPRATROPIUM [Concomitant]
     Active Substance: ALBUTEROL\IPRATROPIUM
  17. SODIUM CHLORIDE [Concomitant]
     Active Substance: SODIUM CHLORIDE
  18. TOPAMAX [Concomitant]
     Active Substance: TOPIRAMATE
  19. FOLIC ACID [Concomitant]
     Active Substance: FOLIC ACID
  20. LEFLUNOMIDE [Concomitant]
     Active Substance: LEFLUNOMIDE
  21. BUSPIRONE HCL [Concomitant]
     Active Substance: BUSPIRONE HYDROCHLORIDE
  22. AMBRISENTAN [Concomitant]
     Active Substance: AMBRISENTAN
  23. CLARITIN [Concomitant]
     Active Substance: LORATADINE
  24. NABUMETONE [Concomitant]
     Active Substance: NABUMETONE
  25. CEFPROZIL [Concomitant]
     Active Substance: CEFPROZIL
  26. ELIQUIS [Concomitant]
     Active Substance: APIXABAN
  27. ESCITALOPRAM OXALATE [Concomitant]
     Active Substance: ESCITALOPRAM OXALATE
  28. PREDNISONE [Concomitant]
     Active Substance: PREDNISONE
  29. LIDOCAINE [Concomitant]
     Active Substance: LIDOCAINE
  30. PENNSAID [Concomitant]
     Active Substance: DICLOFENAC SODIUM
  31. PEPCID [Concomitant]
     Active Substance: FAMOTIDINE
  32. GABAPENTIN [Concomitant]
     Active Substance: GABAPENTIN

REACTIONS (4)
  - Surgery [Unknown]
  - Sinusitis [Not Recovered/Not Resolved]
  - Respiratory tract infection [Unknown]
  - Insurance issue [Unknown]

NARRATIVE: CASE EVENT DATE: 20220801
